FAERS Safety Report 5556828-8 (Version None)
Quarter: 2007Q4

REPORT INFORMATION
  Report Type: 
  Country: None (occurrence: None)
  Receive Date: 20071211
  Receipt Date: 20071211
  Transmission Date: 20080405
  Serious: Yes (Other)
  Sender: FDA-Public Use
  Company Number: None

PATIENT
  Age: 43 Year
  Sex: Female
  Weight: 74.8435 kg

DRUGS (4)
  1. CHANTIX [Suspect]
     Indication: SMOKING CESSATION THERAPY
     Dosage: 0.5MG DAILY PO
     Route: 048
     Dates: start: 20071117, end: 20071120
  2. SEROQUEL [Concomitant]
  3. FOLIC ACID [Concomitant]
  4. VITAMIN B-12 [Concomitant]

REACTIONS (5)
  - ANGER [None]
  - DEPRESSION [None]
  - IRRITABILITY [None]
  - MOOD ALTERED [None]
  - NEGATIVE THOUGHTS [None]
